FAERS Safety Report 6182572 (Version 1)
Quarter: 2020Q3

REPORT INFORMATION
  Report Type: Spontaneous
  Country: DE (occurrence: DE)
  Receive Date: 20061211
  Receipt Date: 20061211
  Transmission Date: 20201105
  Serious: Yes (Hospitalization, Other)
  Sender: FDA-Public Use
  Company Number: PHNU2006DE03991

PATIENT
  Sex: Male
  Weight: 73.2 kg

DRUGS (9)
  1. OMEPRAZOLE. [Concomitant]
     Active Substance: OMEPRAZOLE
     Dosage: 40 MG, BID
     Route: 048
  2. UNSPECIFIED INGREDIENT [Concomitant]
     Active Substance: UNSPECIFIED INGREDIENT
     Indication: ANAEMIA OF MALIGNANT DISEASE
     Route: 065
  3. LISINOPRIL. [Concomitant]
     Active Substance: LISINOPRIL
     Indication: HYPERTENSION
     Route: 065
  4. ACETYLSALICYLIC ACID [Concomitant]
     Active Substance: ASPIRIN
     Dosage: 50 MG, QD
     Route: 065
  5. IBANDRONIC ACID. [Suspect]
     Active Substance: IBANDRONIC ACID
     Dosage: 6 MG, QMO
     Route: 042
     Dates: start: 200609
  6. TRENANTONE [Concomitant]
     Active Substance: LEUPROLIDE ACETATE
     Dosage: 1 DF EVERY 3 MONTHS
     Route: 065
  7. RED BLOOD CELLS [Concomitant]
     Active Substance: HUMAN RED BLOOD CELL
     Dosage: 1 DF, QD
     Dates: start: 20061106, end: 20061108
  8. ZOMETA [Suspect]
     Active Substance: ZOLEDRONIC ACID
     Indication: METASTASES TO BONE
     Route: 042
     Dates: start: 2003, end: 200608
  9. GLYBURIDE. [Concomitant]
     Active Substance: GLYBURIDE
     Indication: TYPE 2 DIABETES MELLITUS
     Dosage: 1.75 MG, QD
     Route: 065

REACTIONS (15)
  - Metabolic acidosis [Unknown]
  - Urinary retention [Unknown]
  - Proteinuria [Not Recovered/Not Resolved]
  - Creatinine renal clearance decreased [Not Recovered/Not Resolved]
  - Electrocardiogram abnormal [Unknown]
  - Urinary tract operation [Unknown]
  - Blood urea increased [Not Recovered/Not Resolved]
  - Hyperparathyroidism secondary [Unknown]
  - Periorbital oedema [Unknown]
  - Blood creatinine increased [Not Recovered/Not Resolved]
  - Renal failure [Not Recovered/Not Resolved]
  - Coronary angioplasty [Unknown]
  - Hip arthroplasty [Unknown]
  - Atrial fibrillation [Unknown]
  - Hypertension [Unknown]

NARRATIVE: CASE EVENT DATE: 20030101
